FAERS Safety Report 22387458 (Version 1)
Quarter: 2023Q2

REPORT INFORMATION
  Report Type: Spontaneous
  Country: ZA (occurrence: ZA)
  Receive Date: 20230531
  Receipt Date: 20230531
  Transmission Date: 20230722
  Serious: Yes (Other)
  Sender: FDA-Public Use
  Company Number: ZA-PFIZER INC-202300203654

PATIENT
  Age: 52 Year
  Sex: Male

DRUGS (1)
  1. ENBREL [Suspect]
     Active Substance: ETANERCEPT
     Indication: Product used for unknown indication
     Dosage: UNK
     Route: 065
     Dates: start: 2007

REACTIONS (5)
  - Limb injury [Unknown]
  - Arthritis [Recovering/Resolving]
  - Carpal tunnel syndrome [Unknown]
  - Joint swelling [Unknown]
  - Joint range of motion decreased [Unknown]
